FAERS Safety Report 25815669 (Version 1)
Quarter: 2025Q3

REPORT INFORMATION
  Report Type: Spontaneous
  Country: GB (occurrence: GB)
  Receive Date: 20250918
  Receipt Date: 20250918
  Transmission Date: 20251021
  Serious: Yes (Other)
  Sender: SAMSUNG BIOEPIS
  Company Number: None

PATIENT
  Age: 43 Year
  Sex: Female
  Weight: 59 kg

DRUGS (1)
  1. PYZCHIVA [Suspect]
     Active Substance: USTEKINUMAB-TTWE
     Indication: Product used for unknown indication
     Dates: start: 20250814

REACTIONS (10)
  - Rectal haemorrhage [Recovered/Resolved]
  - Haematochezia [Unknown]
  - Defaecation urgency [Unknown]
  - Diarrhoea [Recovered/Resolved]
  - Palpitations [Recovered/Resolved]
  - Night sweats [Recovered/Resolved]
  - Abdominal pain [Unknown]
  - Feeling hot [Unknown]
  - Hyperhidrosis [Unknown]
  - Heart rate increased [Unknown]

NARRATIVE: CASE EVENT DATE: 20250814
